FAERS Safety Report 17984459 (Version 2)
Quarter: 2021Q4

REPORT INFORMATION
  Report Type: Spontaneous
  Country: GB (occurrence: GB)
  Receive Date: 20200706
  Receipt Date: 20211026
  Transmission Date: 20220303
  Serious: Yes (Hospitalization)
  Sender: FDA-Public Use
  Company Number: GB-MYLANLABS-2020M1060167

PATIENT
  Age: 73 Year
  Sex: Female

DRUGS (3)
  1. IMATINIB. [Suspect]
     Active Substance: IMATINIB MESYLATE
     Indication: Gastrointestinal stromal tumour
     Dosage: 400 MILLIGRAM, QD
     Route: 048
  2. IMATINIB. [Suspect]
     Active Substance: IMATINIB MESYLATE
     Indication: Adjuvant therapy
  3. HYDROCORTISONE [Suspect]
     Active Substance: HYDROCORTISONE
     Indication: Colitis ulcerative
     Dosage: UNK
     Route: 042

REACTIONS (2)
  - Colitis ulcerative [Recovered/Resolved]
  - Therapy non-responder [Unknown]
